FAERS Safety Report 8546722-2 (Version None)
Quarter: 2012Q3

REPORT INFORMATION
  Report Type: 
  Country: None (occurrence: None)
  Receive Date: 20120727
  Receipt Date: 20120130
  Transmission Date: 20120928
  Serious: No
  Sender: FDA-Public Use
  Company Number: US-ASTRAZENECA-2012SE06660

PATIENT
  Age: 21 Year
  Sex: Female

DRUGS (3)
  1. FLUOXETINE HCL [Concomitant]
  2. LEVAQUIN [Concomitant]
  3. SEROQUEL [Suspect]
     Route: 048

REACTIONS (4)
  - DISTURBANCE IN ATTENTION [None]
  - HALLUCINATION, AUDITORY [None]
  - PSYCHOTIC DISORDER [None]
  - ATTENTION DEFICIT/HYPERACTIVITY DISORDER [None]
